FAERS Safety Report 7349987-8 (Version None)
Quarter: 2011Q1

REPORT INFORMATION
  Report Type: 
  Country: None (occurrence: None)
  Receive Date: 20110314
  Receipt Date: 20110307
  Transmission Date: 20110831
  Serious: Yes (Other)
  Sender: FDA-Public Use
  Company Number: LV-ROCHE-763810

PATIENT
  Age: 59 Year
  Sex: Female

DRUGS (6)
  1. CARDACE [Concomitant]
     Route: 048
  2. SULPHASALAZINE [Concomitant]
     Indication: POLYARTHRITIS
     Route: 048
  3. MIRCERA [Suspect]
     Route: 058
     Dates: start: 20110204
  4. CA ACETAT [Concomitant]
  5. VIT D [Concomitant]
     Route: 048
     Dates: start: 20110103, end: 20110205
  6. PREDNISOLONI [Concomitant]
     Indication: POLYARTHRITIS
     Route: 048

REACTIONS (2)
  - RASH [None]
  - UTERINE HAEMORRHAGE [None]
